FAERS Safety Report 5326589-6 (Version None)
Quarter: 2007Q2

REPORT INFORMATION
  Report Type: 
  Country: None (occurrence: None)
  Receive Date: 20070426
  Receipt Date: 20070412
  Transmission Date: 20071010
  Serious: Yes (Hospitalization, Disabling)
  Sender: FDA-Public Use
  Company Number: WSDF_00635

PATIENT
  Age: 62 Year
  Sex: Female
  Weight: 85 kg

DRUGS (2)
  1. WINRHO [Suspect]
     Indication: IDIOPATHIC THROMBOCYTOPENIC PURPURA
     Dosage: 4300 MCG ONCE IV
     Route: 042
     Dates: start: 20070328, end: 20070328
  2. WINRHO [Suspect]
     Indication: IDIOPATHIC THROMBOCYTOPENIC PURPURA
     Dates: start: 20070328, end: 20070328

REACTIONS (12)
  - ANAEMIA [None]
  - BLOOD GLUCOSE INCREASED [None]
  - BLOOD SODIUM DECREASED [None]
  - CARBOHYDRATE ANTIGEN 125 INCREASED [None]
  - LUNG INFILTRATION [None]
  - MYELOPROLIFERATIVE DISORDER [None]
  - NEUROPATHY PERIPHERAL [None]
  - PLEURITIC PAIN [None]
  - PNEUMONITIS [None]
  - SPLENIC HAEMATOMA [None]
  - SPLENOMEGALY [None]
  - THROMBOCYTOPENIA [None]
